FAERS Safety Report 7324335-8 (Version None)
Quarter: 2011Q1

REPORT INFORMATION
  Report Type: 
  Country: None (occurrence: None)
  Receive Date: 20110301
  Receipt Date: 20110223
  Transmission Date: 20110831
  Serious: Yes (Other)
  Sender: FDA-Public Use
  Company Number: JP-PFIZER INC-2011040054

PATIENT
  Sex: Female

DRUGS (2)
  1. ZOMETA [Suspect]
  2. SUTENT [Suspect]
     Dosage: 37.5 MG, 1X/DAY
     Route: 048

REACTIONS (2)
  - OSTEONECROSIS OF JAW [None]
  - IMPAIRED HEALING [None]
